FAERS Safety Report 6552222-1 (Version None)
Quarter: 2010Q1

REPORT INFORMATION
  Report Type: 
  Country: None (occurrence: None)
  Receive Date: 20100126
  Receipt Date: 20100115
  Transmission Date: 20100710
  Serious: Yes (Other)
  Sender: FDA-Public Use
  Company Number: US-JNJFOC-20100106479

PATIENT
  Sex: Male
  Weight: 85.73 kg

DRUGS (1)
  1. REMICADE [Suspect]
     Indication: CROHN'S DISEASE
     Route: 042

REACTIONS (3)
  - BLASTOMYCOSIS [None]
  - LYMPHADENOPATHY [None]
  - TRANSAMINASES INCREASED [None]
